FAERS Safety Report 8604706-X (Version None)
Quarter: 2012Q3

REPORT INFORMATION
  Report Type: 
  Country: None (occurrence: None)
  Receive Date: 20120820
  Receipt Date: 20120816
  Transmission Date: 20120928
  Serious: Yes (Other)
  Sender: FDA-Public Use
  Company Number: PHHY2012CA071294

PATIENT
  Sex: Female

DRUGS (3)
  1. CLOZARIL [Suspect]
     Dosage: UNK
     Dates: start: 20120426, end: 20120510
  2. CLOZARIL [Suspect]
     Dosage: UNK
     Dates: start: 20120808, end: 20120813
  3. CLOZARIL [Suspect]
     Dosage: UNK
     Route: 048
     Dates: start: 20110930, end: 20120118

REACTIONS (1)
  - PYELONEPHRITIS [None]
